FAERS Safety Report 14326072 (Version 1)
Quarter: 2017Q4

REPORT INFORMATION
  Report Type: Spontaneous
  Country: US (occurrence: US)
  Receive Date: 20171226
  Receipt Date: 20171226
  Transmission Date: 20180321
  Serious: No
  Sender: FDA-Public Use
  Company Number: PHEH2017US041634

PATIENT
  Sex: Female

DRUGS (1)
  1. MEKINIST [Suspect]
     Active Substance: TRAMETINIB DIMETHYL SULFOXIDE
     Indication: BRAIN NEOPLASM
     Dosage: 1 DF, QD
     Route: 048
     Dates: start: 20171120

REACTIONS (3)
  - Product use in unapproved indication [Unknown]
  - Eye movement disorder [Unknown]
  - Vision blurred [Unknown]
